FAERS Safety Report 10569844 (Version 2)
Quarter: 2014Q4

REPORT INFORMATION
  Report Type: Report from Study
  Country: US (occurrence: US)
  Receive Date: 20141107
  Receipt Date: 20141117
  Transmission Date: 20150529
  Serious: Yes (Death, Other)
  Sender: FDA-Public Use
  Company Number: US-AMGEN-USASL2014085349

PATIENT
  Age: 89 Year
  Sex: Female
  Weight: 46.71 kg

DRUGS (14)
  1. CALCIUM [Concomitant]
     Active Substance: CALCIUM
     Indication: OSTEOPOROSIS
     Dosage: 500 MG, BID
     Route: 048
  2. MYSOLINE [Concomitant]
     Active Substance: PRIMIDONE
  3. DIGOXIN. [Concomitant]
     Active Substance: DIGOXIN
     Indication: ATRIAL FIBRILLATION
     Dosage: 125 MUG, QD
     Route: 048
  4. DILTIZEM [Concomitant]
     Indication: ATRIAL FIBRILLATION
     Dosage: 120 UNK, BID
     Route: 048
  5. MULTIVITAMIN                       /07504101/ [Concomitant]
     Active Substance: VITAMINS
  6. KALETRA [Concomitant]
     Active Substance: LOPINAVIR\RITONAVIR
  7. AMBIEN [Concomitant]
     Active Substance: ZOLPIDEM TARTRATE
  8. VICODIN [Concomitant]
     Active Substance: ACETAMINOPHEN\HYDROCODONE BITARTRATE
  9. LEVOTHYROXINE [Concomitant]
     Active Substance: LEVOTHYROXINE
  10. VITAMIN B12 [Concomitant]
     Active Substance: CYANOCOBALAMIN
  11. PROLIA [Suspect]
     Active Substance: DENOSUMAB
     Indication: OSTEOPOROSIS
     Dosage: 60 MG, Q6MO
     Route: 058
     Dates: start: 20130301, end: 20130903
  12. VITAMIN D                          /00107901/ [Concomitant]
     Active Substance: ERGOCALCIFEROL
     Indication: OSTEOPOROSIS
     Dosage: 1000 UNK, BID
     Route: 048
  13. COUMADIN [Concomitant]
     Active Substance: WARFARIN SODIUM
     Indication: ATRIAL FIBRILLATION
     Dosage: 2 UNK, UNK
     Route: 048
  14. SLO-MAG [Concomitant]

REACTIONS (4)
  - Respiratory failure [Fatal]
  - Hypertension [Unknown]
  - Dementia [Unknown]
  - Nutritional condition abnormal [Unknown]
